FAERS Safety Report 7254416-9 (Version None)
Quarter: 2011Q1

REPORT INFORMATION
  Report Type: 
  Country: None (occurrence: None)
  Receive Date: 20110129
  Receipt Date: 20100409
  Transmission Date: 20110831
  Serious: No
  Sender: FDA-Public Use
  Company Number: US-ABBOTT-10P-163-0638323-00

PATIENT
  Sex: Female
  Weight: 45.4 kg

DRUGS (5)
  1. UNKNOWN ANTIBIOTIC [Concomitant]
     Indication: CYSTITIS
     Dates: start: 20100101, end: 20100201
  2. HUMIRA [Suspect]
     Indication: RHEUMATOID ARTHRITIS
     Route: 058
     Dates: start: 20100201, end: 20100201
  3. PLAQUENIL [Concomitant]
     Indication: RHEUMATOID ARTHRITIS
  4. METHOTREXATE [Concomitant]
     Indication: RHEUMATOID ARTHRITIS
  5. MOBIC [Concomitant]
     Indication: RHEUMATOID ARTHRITIS

REACTIONS (2)
  - NASOPHARYNGITIS [None]
  - NAUSEA [None]
